FAERS Safety Report 12196662 (Version 1)
Quarter: 2016Q1

REPORT INFORMATION
  Report Type: Spontaneous
  Country: US (occurrence: US)
  Receive Date: 20160321
  Receipt Date: 20160321
  Transmission Date: 20160526
  Serious: No
  Sender: FDA-Public Use
  Company Number: US-BAYER-2016-053131

PATIENT
  Sex: Female

DRUGS (1)
  1. GADAVIST [Suspect]
     Active Substance: GADOBUTROL
     Indication: COMPUTERISED TOMOGRAM ABDOMEN
     Dosage: 8 ML, ONCE
     Dates: start: 20150824, end: 20150824

REACTIONS (3)
  - Urticaria [None]
  - Off label use [None]
  - Throat irritation [None]

NARRATIVE: CASE EVENT DATE: 20150824
